FAERS Safety Report 10007517 (Version 1)
Quarter: 2014Q1

REPORT INFORMATION
  Report Type: Report from Study
  Country: US (occurrence: US)
  Receive Date: 20140313
  Receipt Date: 20140313
  Transmission Date: 20141002
  Serious: Yes (Other)
  Sender: FDA-Public Use
  Company Number: US-ALEXION PHARMACEUTICALS INC.-A201305112

PATIENT
  Sex: Male

DRUGS (1)
  1. SOLIRIS [Suspect]
     Route: 042

REACTIONS (2)
  - Transfusion [Not Recovered/Not Resolved]
  - Arrhythmia [Unknown]
